FAERS Safety Report 10064361 (Version 2)
Quarter: 2014Q2

REPORT INFORMATION
  Report Type: Spontaneous
  Country: BR (occurrence: BR)
  Receive Date: 20140408
  Receipt Date: 20140408
  Transmission Date: 20141212
  Serious: No
  Sender: FDA-Public Use
  Company Number: BR-SA-FABR-1003314

PATIENT
  Age: 16 Year
  Sex: Male
  Weight: 42 kg

DRUGS (3)
  1. FABRAZYME [Suspect]
     Indication: FABRY^S DISEASE
     Dosage: 0.83 MG/KG, Q2W
     Route: 042
     Dates: start: 20121212
  2. LYRICA [Suspect]
     Indication: PAIN IN EXTREMITY
     Dosage: UNK
     Route: 065
  3. PREGABALIN [Concomitant]
     Indication: PARAESTHESIA
     Dosage: UNK

REACTIONS (4)
  - Abnormal behaviour [Recovered/Resolved]
  - Oropharyngeal pain [Unknown]
  - Pyrexia [Unknown]
  - Pain in extremity [Not Recovered/Not Resolved]
